FAERS Safety Report 9585132 (Version 1)
Quarter: 2013Q4

REPORT INFORMATION
  Report Type: Spontaneous
  Country: US (occurrence: US)
  Receive Date: 20131002
  Receipt Date: 20131002
  Transmission Date: 20140711
  Serious: No
  Sender: FDA-Public Use
  Company Number: US-AMGEN-USASP2013062139

PATIENT
  Age: 88 Year
  Sex: Male

DRUGS (1)
  1. ENBREL [Suspect]
     Indication: RHEUMATOID ARTHRITIS
     Dosage: 50 MG, QWK MONDAYS WITH 25 MILLIGRAM PREFILLED SYRINGE EVERY OTHER WEEK ON WEDNESDAYS PER PHYSCIAN
     Route: 065

REACTIONS (2)
  - Injection site discolouration [Unknown]
  - Injection site reaction [Unknown]
